FAERS Safety Report 18734942 (Version 19)
Quarter: 2022Q1

REPORT INFORMATION
  Report Type: Report from Study
  Country: FR (occurrence: None)
  Receive Date: 20210113
  Receipt Date: 20220207
  Transmission Date: 20220423
  Serious: Yes (Hospitalization)
  Sender: FDA-Public Use
  Company Number: FR-EISAI MEDICAL RESEARCH-EC-2021-086415

PATIENT
  Age: 42 Year
  Sex: Female
  Weight: 71 kg

DRUGS (10)
  1. LENVATINIB [Suspect]
     Active Substance: LENVATINIB
     Indication: Malignant melanoma stage III
     Route: 048
     Dates: start: 20200921, end: 2021
  2. LENVATINIB [Suspect]
     Active Substance: LENVATINIB
     Indication: Malignant melanoma stage IV
  3. PEMBROLIZUMAB [Suspect]
     Active Substance: PEMBROLIZUMAB
     Indication: Malignant melanoma stage III
     Route: 041
     Dates: start: 20200921, end: 20201124
  4. PEMBROLIZUMAB [Suspect]
     Active Substance: PEMBROLIZUMAB
     Indication: Malignant melanoma stage IV
     Route: 041
     Dates: start: 20201215, end: 20201215
  5. PEMBROLIZUMAB [Suspect]
     Active Substance: PEMBROLIZUMAB
     Route: 041
     Dates: start: 20210202, end: 20210202
  6. PEMBROLIZUMAB [Suspect]
     Active Substance: PEMBROLIZUMAB
     Route: 041
     Dates: start: 20210219, end: 20210427
  7. ATARAX [Concomitant]
     Active Substance: HYDROXYZINE HYDROCHLORIDE
     Dates: start: 202008
  8. ACETAMINOPHEN [Concomitant]
     Active Substance: ACETAMINOPHEN
     Dates: start: 20200923
  9. POLYETHYLENE GLYCOL 4000 [Concomitant]
     Active Substance: POLYETHYLENE GLYCOL 4000
     Dates: start: 20201026
  10. LOXEN [Concomitant]
     Dates: start: 20201023

REACTIONS (3)
  - Pancreatitis [Recovered/Resolved]
  - Chronic gastritis [Recovered/Resolved]
  - COVID-19 [Recovered/Resolved with Sequelae]

NARRATIVE: CASE EVENT DATE: 20201220
